FAERS Safety Report 8785777 (Version 1)
Quarter: 2012Q4

REPORT INFORMATION
  Report Type: Spontaneous
  Country: TR (occurrence: None)
  Receive Date: 20120905
  Receipt Date: 20120905
  Transmission Date: 20130627
  Serious: Yes (Other)
  Sender: FDA-Public Use
  Company Number: DSA_59107_2012

PATIENT
  Age: 33 Year
  Sex: Female

DRUGS (1)
  1. DICLOFENAC [Suspect]
     Indication: HEADACHE
     Dosage: DF Intramuscular

REACTIONS (2)
  - Embolia cutis medicamentosa [None]
  - Scar [None]
